FAERS Safety Report 15762380 (Version 2)
Quarter: 2019Q1

REPORT INFORMATION
  Report Type: Spontaneous
  Country: PL (occurrence: PL)
  Receive Date: 20181226
  Receipt Date: 20190114
  Transmission Date: 20190417
  Serious: Yes (Other)
  Sender: FDA-Public Use
  Company Number: PL-MYLANLABS-2018M1095053

PATIENT
  Age: 40 Year
  Sex: Female

DRUGS (22)
  1. VALPROIC ACID. [Suspect]
     Active Substance: VALPROIC ACID
     Indication: SCHIZOPHRENIA
  2. RISPERIDONE. [Suspect]
     Active Substance: RISPERIDONE
     Indication: SCHIZOPHRENIA
     Dosage: 6 MILLIGRAM, QD
     Route: 048
     Dates: start: 201707, end: 2017
  3. VALPROIC ACID. [Suspect]
     Active Substance: VALPROIC ACID
     Indication: PARANOIA
     Dosage: DOSAGE FORM: UNSPECIFIED, 2 X 500 MG
     Route: 065
     Dates: start: 201210
  4. RISPERIDONE. [Suspect]
     Active Substance: RISPERIDONE
     Indication: PARANOIA
     Dosage: DOSAGE FORM: UNSPECIFIED
     Route: 048
     Dates: start: 201704, end: 201706
  5. AKINETON [Concomitant]
     Active Substance: BIPERIDEN HYDROCHLORIDE
     Dosage: 2 DOSAGE FORM
     Route: 065
     Dates: start: 201210
  6. QUETIAPINE XR [Suspect]
     Active Substance: QUETIAPINE
     Indication: SCHIZOPHRENIA
     Dosage: DOSAGE FORM: UNSPECIFIED, 0-0-1; START DATE: BETWEEN OCT AND DEC-2017
     Route: 065
     Dates: start: 2017
  7. QUETIAPINE. [Suspect]
     Active Substance: QUETIAPINE
     Indication: PARANOIA
     Dosage: UNK
     Route: 065
     Dates: start: 201706, end: 2017
  8. RISPERIDONE. [Suspect]
     Active Substance: RISPERIDONE
     Dosage: DOSAGE FORM: UNSPECIFIED
     Route: 048
     Dates: start: 201704
  9. RISPOLEPT CONSTA [Suspect]
     Active Substance: RISPERIDONE
     Indication: SCHIZOPHRENIA
  10. ARIPIPRAZOLE. [Suspect]
     Active Substance: ARIPIPRAZOLE
     Indication: SCHIZOPHRENIA
  11. RISPERIDONE. [Suspect]
     Active Substance: RISPERIDONE
     Dosage: DOSAGE FORM: UNSPECIFIED, FOR MIN. 3-4 WEEKS
     Route: 048
     Dates: start: 201706, end: 2017
  12. DIAZEPAM. [Suspect]
     Active Substance: DIAZEPAM
     Indication: PARANOIA
     Dosage: DOSAGE FORM: UNSPECIFIED
     Route: 065
     Dates: start: 201210
  13. SEDAM [Suspect]
     Active Substance: BROMAZEPAM
     Indication: INSOMNIA
     Dosage: DOSAGE FORM: UNSPECIFIED
     Route: 065
     Dates: end: 201704
  14. SEDAM [Suspect]
     Active Substance: BROMAZEPAM
     Dosage: 3 MILLIGRAM, QD
     Route: 065
     Dates: start: 201704, end: 2017
  15. QUETIAPINE. [Suspect]
     Active Substance: QUETIAPINE
     Indication: SCHIZOPHRENIA
     Dosage: 100 MILLIGRAM
     Route: 065
     Dates: start: 2017
  16. ARIPIPRAZOLE. [Suspect]
     Active Substance: ARIPIPRAZOLE
     Indication: PARANOIA
     Dosage: DOSAGE FORM: UNSPECIFIED
     Route: 065
     Dates: start: 201210
  17. DIAZEPAM. [Suspect]
     Active Substance: DIAZEPAM
     Indication: SCHIZOPHRENIA
  18. RISPOLEPT CONSTA [Suspect]
     Active Substance: RISPERIDONE
     Indication: PARANOIA
     Dosage: 50 MILLIGRAM, BIWEEKLY
     Route: 030
     Dates: start: 201706
  19. SEDAM [Suspect]
     Active Substance: BROMAZEPAM
     Dosage: 1.5 MILLIGRAM, PRN (DOSAGE FORM: UNSPECIFIED, AT NIGHT, TEMPORARILY)
     Route: 065
     Dates: start: 2017
  20. QUETIAPINE XR [Suspect]
     Active Substance: QUETIAPINE
     Indication: PARANOIA
     Dosage: DOSAGE FORM: UNSPECIFIED
     Route: 065
     Dates: start: 201704, end: 2017
  21. GUTRON [Concomitant]
     Active Substance: MIDODRINE
     Dosage: DOSAGE FORM: UNSPECIFIED
     Route: 065
     Dates: start: 201210
  22. LACTULOSUM [Concomitant]
     Dosage: DOSAGE FORM: UNSPECIFIED, 2 GIFERS IN THE MORNING
     Route: 065
     Dates: start: 201210

REACTIONS (7)
  - Memory impairment [Recovered/Resolved]
  - Treatment noncompliance [Unknown]
  - Disturbance in attention [Recovered/Resolved]
  - Anxiety [Recovered/Resolved]
  - Suicidal ideation [Recovered/Resolved]
  - Inappropriate schedule of product administration [Unknown]
  - Persecutory delusion [Recovered/Resolved]

NARRATIVE: CASE EVENT DATE: 2017
